FAERS Safety Report 15488606 (Version 1)
Quarter: 2018Q4

REPORT INFORMATION
  Report Type: Spontaneous
  Country: ES (occurrence: ES)
  Receive Date: 20181011
  Receipt Date: 20181011
  Transmission Date: 20190205
  Serious: Yes (Hospitalization)
  Sender: FDA-Public Use
  Company Number: ES-BAYER-2018-184741

PATIENT
  Age: 81 Year
  Sex: Female

DRUGS (2)
  1. BRILIQUE [Interacting]
     Active Substance: TICAGRELOR
     Indication: ACUTE CORONARY SYNDROME
     Dosage: 90 MG, BID
     Route: 048
     Dates: start: 20171013, end: 20180723
  2. ASPIRIN. [Suspect]
     Active Substance: ASPIRIN
     Indication: ACUTE CORONARY SYNDROME
     Dosage: 100 MG, QD
     Route: 048
     Dates: start: 20171013, end: 20180723

REACTIONS (5)
  - Syncope [Recovered/Resolved]
  - Anaemia [Recovering/Resolving]
  - Duodenal ulcer [Recovered/Resolved]
  - Upper gastrointestinal haemorrhage [Recovered/Resolved]
  - Angina pectoris [Recovered/Resolved]

NARRATIVE: CASE EVENT DATE: 20180720
